FAERS Safety Report 20197370 (Version 3)
Quarter: 2022Q1

REPORT INFORMATION
  Report Type: Spontaneous
  Country: ES (occurrence: ES)
  Receive Date: 20211217
  Receipt Date: 20220123
  Transmission Date: 20220423
  Serious: No
  Sender: FDA-Public Use
  Company Number: ES-UCBSA-2021059055

PATIENT

DRUGS (4)
  1. NEUPRO [Suspect]
     Active Substance: ROTIGOTINE
     Indication: Restless legs syndrome
     Dosage: 1MG UNK
     Route: 062
  2. NEUPRO [Suspect]
     Active Substance: ROTIGOTINE
     Dosage: 2MG UNK
     Route: 062
  3. NEUPRO [Suspect]
     Active Substance: ROTIGOTINE
     Dosage: 3MG UNK
     Route: 062
  4. NEUPRO [Suspect]
     Active Substance: ROTIGOTINE
     Dosage: 4MG UNK
     Route: 062

REACTIONS (3)
  - Device adhesion issue [Unknown]
  - Drug ineffective [Unknown]
  - Product dose omission issue [Unknown]
